FAERS Safety Report 11202221 (Version 1)
Quarter: 2015Q2

REPORT INFORMATION
  Report Type: Report from Study
  Country: NL (occurrence: NL)
  Receive Date: 20150619
  Receipt Date: 20150619
  Transmission Date: 20150821
  Serious: Yes (Other)
  Sender: FDA-Public Use
  Company Number: NL-BAYER-2015-327814

PATIENT
  Age: 58 Year
  Sex: Female

DRUGS (3)
  1. DETRUSITOL [Concomitant]
     Active Substance: TOLTERODINE TARTRATE
  2. BETAFERON [Suspect]
     Active Substance: INTERFERON BETA-1B
     Indication: SECONDARY PROGRESSIVE MULTIPLE SCLEROSIS
     Dosage: UNK
     Dates: start: 1998, end: 20150526
  3. ALVESCO [Concomitant]
     Active Substance: CICLESONIDE

REACTIONS (6)
  - Faeces discoloured [None]
  - Respiratory rate increased [Recovered/Resolved]
  - Weight decreased [None]
  - Secondary progressive multiple sclerosis [None]
  - Basedow^s disease [Recovered/Resolved]
  - Heart rate increased [Recovered/Resolved]

NARRATIVE: CASE EVENT DATE: 20150328
